FAERS Safety Report 22269220 (Version 1)
Quarter: 2023Q2

REPORT INFORMATION
  Report Type: Spontaneous
  Country: US (occurrence: US)
  Receive Date: 20230501
  Receipt Date: 20230501
  Transmission Date: 20230722
  Serious: No
  Sender: FDA-Public Use
  Company Number: US-GSK-US2023AMR058922

PATIENT
  Sex: Female

DRUGS (1)
  1. FLUTICASONE PROPIONATE [Suspect]
     Active Substance: FLUTICASONE PROPIONATE
     Indication: Product used for unknown indication
     Dosage: 44 MCG, 10.6G/120

REACTIONS (5)
  - Feeling abnormal [Unknown]
  - Ocular hyperaemia [Unknown]
  - Hypersensitivity [Unknown]
  - Crying [Unknown]
  - Illness [Unknown]
